FAERS Safety Report 5886662-0 (Version None)
Quarter: 2008Q3

REPORT INFORMATION
  Report Type: 
  Country: None (occurrence: None)
  Receive Date: 20080917
  Receipt Date: 20080910
  Transmission Date: 20090109
  Serious: Yes (Other)
  Sender: FDA-Public Use
  Company Number: PHHY2008BR21257

PATIENT
  Age: 58 Year
  Sex: Male

DRUGS (2)
  1. STARLIX [Suspect]
     Indication: HYPERGLYCAEMIA
     Dosage: 1.5 TABLET PER DAY
     Route: 048
     Dates: start: 20080801
  2. METFORMIN HCL [Concomitant]
     Indication: DIABETES MELLITUS
     Dosage: 3 TABLETS PER DAY
     Route: 048
     Dates: start: 20080801

REACTIONS (4)
  - NEUROPATHY PERIPHERAL [None]
  - NODULE ON EXTREMITY [None]
  - PAIN IN EXTREMITY [None]
  - SKIN DISCOLOURATION [None]
